FAERS Safety Report 6747385-9 (Version None)
Quarter: 2010Q2

REPORT INFORMATION
  Report Type: 
  Country: None (occurrence: None)
  Receive Date: 20100528
  Receipt Date: 20100524
  Transmission Date: 20101027
  Serious: Yes (Other)
  Sender: FDA-Public Use
  Company Number: B0657323A

PATIENT
  Age: 42 Year
  Sex: Male

DRUGS (2)
  1. COMBIVIR [Suspect]
     Indication: RETROVIRAL INFECTION
     Route: 048
  2. EFAVIRENZ [Concomitant]

REACTIONS (2)
  - HAEMOLYTIC ANAEMIA [None]
  - LEUKOPENIA [None]
